FAERS Safety Report 8057049-X (Version None)
Quarter: 2012Q1

REPORT INFORMATION
  Report Type: 
  Country: None (occurrence: None)
  Receive Date: 20120119
  Receipt Date: 20120113
  Transmission Date: 20120608
  Serious: Yes (Hospitalization, Other)
  Sender: FDA-Public Use
  Company Number: JP-ABBOTT-11P-087-0873118-00

PATIENT
  Sex: Male
  Weight: 59.5 kg

DRUGS (12)
  1. OMEPRAZOLE [Concomitant]
     Indication: GASTROINTESTINAL DISORDER
     Dosage: 20 MG DAILY
     Route: 048
  2. LOPERAMIDE HCL [Concomitant]
     Indication: SHORT-BOWEL SYNDROME
     Dosage: 4 MG DAILY
     Route: 048
  3. MESALAMINE [Concomitant]
     Indication: CROHN'S DISEASE
     Dosage: 3000 MG DAILY
     Route: 048
  4. FEXOFENADINE HYDROCHLORIDE [Concomitant]
     Indication: PRURITUS
     Dosage: 120 MG DAILY
     Route: 048
  5. HUMIRA [Suspect]
     Indication: CROHN'S DISEASE
     Route: 058
     Dates: start: 20110303, end: 20110303
  6. POLAPREZINC [Concomitant]
     Indication: GASTROINTESTINAL DISORDER
     Dosage: 150 MG DAILY
     Route: 048
  7. HUMIRA [Suspect]
     Dates: start: 20110317, end: 20110317
  8. CLOSTRIDIUM BUTYRICUM [Concomitant]
     Indication: SHORT-BOWEL SYNDROME
     Dosage: 6 DOSAGE FORMS DAILY
     Route: 048
  9. ENTERAL NUTRITION THERAPY [Concomitant]
     Indication: PRODUCT USED FOR UNKNOWN INDICATION
  10. HUMIRA [Suspect]
     Dates: start: 20110331
  11. SOYBEAN OIL [Concomitant]
     Indication: SHORT-BOWEL SYNDROME
     Dosage: 100 ML/WEEK
  12. ISONIAZID [Concomitant]
     Indication: ANTIBIOTIC PROPHYLAXIS
     Dates: start: 20110217

REACTIONS (11)
  - ANORECTAL DISORDER [None]
  - POSTOPERATIVE WOUND INFECTION [None]
  - CROHN'S DISEASE [None]
  - PAIN [None]
  - INFECTION [None]
  - PURULENT DISCHARGE [None]
  - ANAL ULCER [None]
  - SKIN ULCER HAEMORRHAGE [None]
  - RECTAL ULCER [None]
  - GRANULOMA [None]
  - SKIN EXFOLIATION [None]
